FAERS Safety Report 17418918 (Version 1)
Quarter: 2020Q1

REPORT INFORMATION
  Report Type: Report from Study
  Country: US (occurrence: US)
  Receive Date: 20200214
  Receipt Date: 20200214
  Transmission Date: 20200409
  Serious: Yes (Hospitalization)
  Sender: FDA-Public Use
  Company Number: US-TEVA-2020-US-1182132

PATIENT
  Age: 65 Year
  Sex: Female

DRUGS (1)
  1. COPAXONE [Suspect]
     Active Substance: GLATIRAMER ACETATE
     Dosage: FORM STRENGTH: UNKNOWN
     Route: 065

REACTIONS (17)
  - Gait disturbance [Unknown]
  - Depressed mood [Unknown]
  - Treatment failure [Unknown]
  - Anaphylactic reaction [Unknown]
  - Hypoaesthesia [Unknown]
  - Erythema [Unknown]
  - Intestinal obstruction [Unknown]
  - Asthenia [Unknown]
  - Insomnia [Unknown]
  - Oedema peripheral [Unknown]
  - Paraesthesia [Unknown]
  - Wheelchair user [Unknown]
  - Anxiety [Unknown]
  - Coordination abnormal [Unknown]
  - Mastectomy [Unknown]
  - Balance disorder [Unknown]
  - Back pain [Unknown]

NARRATIVE: CASE EVENT DATE: 202001
